FAERS Safety Report 18211153 (Version 2)
Quarter: 2020Q3

REPORT INFORMATION
  Report Type: Other
  Country: JP (occurrence: JP)
  Receive Date: 20200830
  Receipt Date: 20200909
  Transmission Date: 20201103
  Serious: Yes (Other)
  Sender: FDA-Public Use
  Company Number: JP-ROCHE-2667595

PATIENT
  Age: 44 Year
  Sex: Female

DRUGS (2)
  1. AVASTIN [Suspect]
     Active Substance: BEVACIZUMAB
     Indication: BREAST CANCER
     Dosage: ADMINISTERED ON DAY 1 AND 15 AND 1 WEEK OFF
     Route: 041
  2. PACLITAXEL. [Concomitant]
     Active Substance: PACLITAXEL
     Indication: BREAST CANCER
     Dosage: ADMINISTERED ON DAY 1, 8 AND 15 AND 1 WEEK OFF
     Route: 041

REACTIONS (2)
  - Metastases to bone [Unknown]
  - Neuropathy peripheral [Unknown]
